FAERS Safety Report 12990121 (Version 1)
Quarter: 2016Q4

REPORT INFORMATION
  Report Type: Spontaneous
  Country: BR (occurrence: BR)
  Receive Date: 20161201
  Receipt Date: 20161201
  Transmission Date: 20170207
  Serious: Yes (Hospitalization)
  Sender: FDA-Public Use
  Company Number: BR-BAYER-2016-224138

PATIENT
  Age: 51 Year
  Sex: Female

DRUGS (2)
  1. AVALOX [Suspect]
     Active Substance: MOXIFLOXACIN HYDROCHLORIDE
     Indication: BACTERIAL INFECTION
     Dosage: 1 DF, QD
     Route: 048
     Dates: start: 20161111, end: 20161113
  2. AVALOX [Suspect]
     Active Substance: MOXIFLOXACIN HYDROCHLORIDE
     Indication: HEADACHE

REACTIONS (8)
  - Heart rate increased [Recovered/Resolved]
  - Speech disorder [Recovered/Resolved]
  - Faeces discoloured [Recovered/Resolved]
  - Eye colour change [Recovered/Resolved]
  - Muscular weakness [Recovered/Resolved]
  - Diarrhoea [Recovered/Resolved]
  - Nausea [Recovered/Resolved]
  - Formication [Recovered/Resolved]

NARRATIVE: CASE EVENT DATE: 20161111
